FAERS Safety Report 6217301-7 (Version None)
Quarter: 2009Q2

REPORT INFORMATION
  Report Type: 
  Country: None (occurrence: None)
  Receive Date: 20090604
  Receipt Date: 20090604
  Transmission Date: 20091009
  Serious: Yes (Hospitalization)
  Sender: FDA-Public Use
  Company Number: None

PATIENT
  Sex: Male
  Weight: 112 kg

DRUGS (12)
  1. XELODA [Suspect]
     Dosage: 7200 MG
  2. CAMPTOSAR [Suspect]
     Dosage: 360 MG
  3. ELOXATIN [Suspect]
     Dosage: 200 MG
  4. ALLOPURINOL [Concomitant]
  5. ATENOLOL [Concomitant]
  6. ATIVAN [Concomitant]
  7. CALCIUM+D [Concomitant]
  8. MULTI-VITAMIN [Concomitant]
  9. NORVASC [Concomitant]
  10. OMEPRAZOLE [Concomitant]
  11. PROCHLORPERAZINE [Concomitant]
  12. ZOFRAN [Concomitant]

REACTIONS (4)
  - DEHYDRATION [None]
  - DIARRHOEA [None]
  - NEUTROPENIA [None]
  - RENAL FAILURE [None]
